FAERS Safety Report 11209269 (Version 5)
Quarter: 2016Q3

REPORT INFORMATION
  Report Type: Report from Study
  Country: FR (occurrence: FR)
  Receive Date: 20150622
  Receipt Date: 20160805
  Transmission Date: 20161109
  Serious: Yes (Hospitalization)
  Sender: FDA-Public Use
  Company Number: FR-EISAI MEDICAL RESEARCH-EC-2015-007706

PATIENT
  Age: 38 Year
  Sex: Male
  Weight: 65 kg

DRUGS (9)
  1. BARACLUDE [Concomitant]
     Active Substance: ENTECAVIR
  2. THIOCOLCHICOSIDE [Concomitant]
     Active Substance: THIOCOLCHICOSIDE
  3. LOVENOX [Concomitant]
     Active Substance: ENOXAPARIN SODIUM
  4. LENVATINIB [Suspect]
     Active Substance: LENVATINIB
     Indication: HEPATOCELLULAR CARCINOMA
     Route: 048
     Dates: start: 20150608, end: 20150617
  5. LENVATINIB [Suspect]
     Active Substance: LENVATINIB
     Route: 048
     Dates: start: 20150813, end: 20150819
  6. OXYCONTIN [Concomitant]
     Active Substance: OXYCODONE HYDROCHLORIDE
  7. VIREAD [Concomitant]
     Active Substance: TENOFOVIR DISOPROXIL FUMARATE
  8. OXYNORM [Concomitant]
     Active Substance: OXYCODONE HYDROCHLORIDE
  9. LENVATINIB [Suspect]
     Active Substance: LENVATINIB
     Route: 048
     Dates: start: 20150622, end: 20150804

REACTIONS (3)
  - Hepatic encephalopathy [Not Recovered/Not Resolved]
  - Asthenia [Recovered/Resolved]
  - Abdominal pain [Recovered/Resolved]

NARRATIVE: CASE EVENT DATE: 20150611
